FAERS Safety Report 8875868 (Version 2)
Quarter: 2012Q4

REPORT INFORMATION
  Report Type: 
  Country: ES (occurrence: ES)
  Receive Date: 20121023
  Receipt Date: 20121105
  Transmission Date: 20130627
  Serious: Yes (Death)
  Sender: FDA-Public Use
  Company Number: ES-ROCHE-1147172

PATIENT
  Age: 82 Year
  Sex: Male

DRUGS (2)
  1. ALTEPLASE [Suspect]
     Indication: ISCHAEMIC STROKE
     Route: 042
  2. ANTIHYPERTENSIVE AGENT [Concomitant]
     Indication: HYPERTENSION
     Route: 042

REACTIONS (1)
  - Haemorrhage intracranial [Fatal]
